FAERS Safety Report 5412183-5 (Version None)
Quarter: 2007Q3

REPORT INFORMATION
  Report Type: 
  Country: None (occurrence: None)
  Receive Date: 20070809
  Receipt Date: 20070801
  Transmission Date: 20080115
  Serious: Yes (Hospitalization, Disabling)
  Sender: FDA-Public Use
  Company Number: SP01257

PATIENT
  Age: 60 Year
  Sex: Female
  Weight: 60.782 kg

DRUGS (3)
  1. MOVIPREP [Suspect]
     Indication: BOWEL PREPARATION
     Dosage: EVENING ONLY (FULL DOSE) REGIMEN, ORAL
     Route: 048
     Dates: start: 20070520, end: 20070520
  2. CALCIUM (TABLETS) [Concomitant]
  3. MULTI-VITAMIN [Concomitant]

REACTIONS (9)
  - ALPHA HAEMOLYTIC STREPTOCOCCAL INFECTION [None]
  - APPENDICEAL ABSCESS [None]
  - APPENDICITIS [None]
  - CATHETER RELATED COMPLICATION [None]
  - CATHETER SITE OEDEMA [None]
  - CELLULITIS [None]
  - COLONIC POLYP [None]
  - ENTEROBACTER INFECTION [None]
  - ESCHERICHIA INFECTION [None]
